FAERS Safety Report 25325566 (Version 2)
Quarter: 2025Q2

REPORT INFORMATION
  Report Type: Spontaneous
  Country: US (occurrence: US)
  Receive Date: 20250516
  Receipt Date: 20250516
  Transmission Date: 20250717
  Serious: No
  Sender: GALDERMA
  Company Number: US-GALDERMA-US2025001638

PATIENT
  Sex: Female

DRUGS (1)
  1. NEMLUVIO [Suspect]
     Active Substance: NEMOLIZUMAB-ILTO
     Indication: Neurodermatitis
     Route: 058

REACTIONS (5)
  - Nausea [Unknown]
  - Headache [Unknown]
  - Epistaxis [Recovered/Resolved]
  - Influenza [Not Recovered/Not Resolved]
  - Asthenia [Unknown]
